FAERS Safety Report 25271108 (Version 1)
Quarter: 2025Q2

REPORT INFORMATION
  Report Type: Report from Study
  Country: US (occurrence: US)
  Receive Date: 20250506
  Receipt Date: 20250506
  Transmission Date: 20250717
  Serious: Yes (Death, Hospitalization, Other)
  Sender: UCB
  Company Number: US-UCBSA-2025023596

PATIENT
  Sex: Female
  Weight: 30.4 kg

DRUGS (1)
  1. FINTEPLA [Suspect]
     Active Substance: FENFLURAMINE
     Indication: Lennox-Gastaut syndrome
     Dosage: 2.8 MILLILITER, 2X/DAY (BID)
     Route: 048
     Dates: start: 20240622, end: 20250421

REACTIONS (27)
  - Post procedural complication [Fatal]
  - Chronic respiratory failure [Fatal]
  - Mechanical ventilation [Fatal]
  - Hip surgery [Not Recovered/Not Resolved]
  - Oedema [Not Recovered/Not Resolved]
  - Seizure [Recovered/Resolved]
  - Feeding intolerance [Not Recovered/Not Resolved]
  - Atelectasis [Unknown]
  - Ascites [Unknown]
  - Cardiomyopathy [Unknown]
  - Ankle operation [Unknown]
  - Septic shock [Fatal]
  - Multiple organ dysfunction syndrome [Fatal]
  - Foot deformity [Unknown]
  - Procedural pain [Unknown]
  - Anaemia [Unknown]
  - Candida infection [Unknown]
  - Electrolyte imbalance [Unknown]
  - Hyperglycaemia [Unknown]
  - Hypomagnesaemia [Unknown]
  - Blood albumin decreased [Unknown]
  - Hypervolaemia [Unknown]
  - Paronychia [Unknown]
  - Wound [Unknown]
  - Tachycardia [Unknown]
  - Postoperative wound infection [Unknown]
  - Laparotomy [Unknown]

NARRATIVE: CASE EVENT DATE: 20250101
